FAERS Safety Report 23934274 (Version 2)
Quarter: 2024Q2

REPORT INFORMATION
  Report Type: Spontaneous
  Country: ES (occurrence: ES)
  Receive Date: 20240603
  Receipt Date: 20240611
  Transmission Date: 20240716
  Serious: Yes (Other)
  Sender: FDA-Public Use
  Company Number: ES-IMP-2024000312

PATIENT
  Age: 26 Year
  Sex: Male

DRUGS (12)
  1. CYCLOSPORINE [Suspect]
     Active Substance: CYCLOSPORINE
     Indication: Cystoid macular oedema
     Route: 047
  2. CYCLOSPORINE [Suspect]
     Active Substance: CYCLOSPORINE
     Indication: Cystoid macular oedema
     Route: 047
  3. NEPAFENAC [Suspect]
     Active Substance: NEPAFENAC
     Indication: Retinitis pigmentosa
     Route: 047
  4. NEPAFENAC [Suspect]
     Active Substance: NEPAFENAC
     Indication: Retinitis pigmentosa
     Route: 047
  5. TRIAMCINOLONE ACETONIDE [Suspect]
     Active Substance: TRIAMCINOLONE ACETONIDE
     Indication: Retinitis pigmentosa
     Route: 047
  6. ADALIMUMAB [Suspect]
     Active Substance: ADALIMUMAB\ISOPROPYL ALCOHOL
     Indication: Retinitis pigmentosa
     Route: 058
  7. AZATHIOPRINE [Suspect]
     Active Substance: AZATHIOPRINE
     Indication: Retinitis pigmentosa
  8. DORZOLAMIDE [Suspect]
     Active Substance: DORZOLAMIDE
     Indication: Retinitis pigmentosa
  9. ACETAZOLAMIDE SODIUM [Suspect]
     Active Substance: ACETAZOLAMIDE SODIUM
     Indication: Retinitis pigmentosa
     Route: 048
  10. DEXAMETHASONE [Suspect]
     Active Substance: DEXAMETHASONE
     Indication: Retinitis pigmentosa
     Route: 050
  11. METHOTREXATE [Concomitant]
     Active Substance: METHOTREXATE
     Indication: Product used for unknown indication
     Route: 065
  12. INFLIXIMAB [Concomitant]
     Active Substance: INFLIXIMAB
     Indication: Product used for unknown indication
     Route: 065

REACTIONS (5)
  - Cystoid macular oedema [Recovered/Resolved]
  - Macular oedema [Recovered/Resolved]
  - Renal colic [Unknown]
  - Therapeutic product effect incomplete [Unknown]
  - Off label use [Unknown]
